FAERS Safety Report 8435394-3 (Version None)
Quarter: 2012Q2

REPORT INFORMATION
  Report Type: 
  Country: None (occurrence: None)
  Receive Date: 20120614
  Receipt Date: 20120611
  Transmission Date: 20120825
  Serious: Yes (Life-Threatening, Hospitalization, Other)
  Sender: FDA-Public Use
  Company Number: PHHY2012FR025451

PATIENT
  Age: 70 Year
  Sex: Male

DRUGS (6)
  1. CALCIUM CHANNEL BLOCKERS [Concomitant]
     Route: 048
  2. RASILEZ [Suspect]
     Indication: HYPERTENSION
  3. DIURETICS [Suspect]
     Indication: ESSENTIAL HYPERTENSION
     Route: 048
  4. ANGIOTENSIN II ANTAGONISTS [Suspect]
     Indication: ESSENTIAL HYPERTENSION
     Route: 048
  5. ACE INHIBITOR NOS [Suspect]
     Indication: ESSENTIAL HYPERTENSION
     Route: 048
  6. BETA BLOCKING AGENTS [Suspect]
     Indication: ESSENTIAL HYPERTENSION
     Route: 048

REACTIONS (8)
  - RENAL FAILURE ACUTE [None]
  - NAUSEA [None]
  - HAEMOLYTIC URAEMIC SYNDROME [None]
  - HYPERKALAEMIA [None]
  - VOMITING [None]
  - ORTHOSTATIC HYPOTENSION [None]
  - GENERAL PHYSICAL HEALTH DETERIORATION [None]
  - MUSCLE SPASMS [None]
